FAERS Safety Report 13833673 (Version 1)
Quarter: 2017Q3

REPORT INFORMATION
  Report Type: Spontaneous
  Country: US (occurrence: US)
  Receive Date: 20170804
  Receipt Date: 20170804
  Transmission Date: 20171127
  Serious: Yes (Other)
  Sender: FDA-Public Use
  Company Number: US-PFIZER INC-2017333074

PATIENT
  Age: 83 Year
  Sex: Female
  Weight: 68.27 kg

DRUGS (1)
  1. SUTENT [Suspect]
     Active Substance: SUNITINIB MALATE
     Indication: GASTRIC CANCER
     Dosage: 25 MG, DAILY
     Route: 048
     Dates: start: 20170726

REACTIONS (1)
  - Terminal state [Unknown]
